FAERS Safety Report 4879240-3 (Version None)
Quarter: 2005Q4

REPORT INFORMATION
  Report Type: 
  Country: None (occurrence: None)
  Receive Date: 20051205
  Receipt Date: 20041011
  Transmission Date: 20060501
  Serious: Yes (Hospitalization)
  Sender: FDA-Public Use
  Company Number: 2004-121159-NL

PATIENT
  Age: 31 Year
  Sex: Female
  Weight: 97.1 kg

DRUGS (6)
  1. NUVARING [Suspect]
     Indication: CONTRACEPTION
     Dosage: VAGINAL
     Route: 067
     Dates: start: 20040721, end: 20040818
  2. NUVARING [Suspect]
     Indication: CONTRACEPTION
     Dates: start: 20040825, end: 20050929
  3. TYLENOL (CAPLET) [Concomitant]
  4. NEXIUM [Concomitant]
  5. LEXAPRO [Concomitant]
  6. BENADRYL [Concomitant]

REACTIONS (1)
  - PULMONARY EMBOLISM [None]
